FAERS Safety Report 7021584-3 (Version None)
Quarter: 2010Q3

REPORT INFORMATION
  Report Type: 
  Country: None (occurrence: None)
  Receive Date: 20100928
  Receipt Date: 20100907
  Transmission Date: 20110219
  Serious: Yes (Other)
  Sender: FDA-Public Use
  Company Number: AUR-APL-2010-02344

PATIENT
  Age: 3 Year
  Sex: 0
  Weight: 17.2367 kg

DRUGS (5)
  1. CEFTRIAXONE [Suspect]
     Indication: URTICARIA
     Dates: start: 20100401
  2. AZITHROMYCIN [Suspect]
     Dates: start: 20100401
  3. CHILDREN'S MOTRIN [Suspect]
     Indication: OROPHARYNGEAL PAIN
     Dosage: 7.5ML-BID-ORAL
     Route: 048
     Dates: start: 20100414, end: 20100417
  4. CHILDREN'S TYLENOL SUSPENSION [Suspect]
     Indication: ABDOMINAL PAIN
     Dates: start: 20100417
  5. BENADRYL [Suspect]
     Indication: RASH
     Dosage: 5ML, TID, ORAL
     Route: 048
     Dates: start: 20100416

REACTIONS (4)
  - HYPERSENSITIVITY [None]
  - LIP SWELLING [None]
  - PRODUCT QUALITY ISSUE [None]
  - SWELLING FACE [None]
